FAERS Safety Report 6046907-3 (Version None)
Quarter: 2009Q1

REPORT INFORMATION
  Report Type: 
  Country: None (occurrence: None)
  Receive Date: 20090122
  Receipt Date: 20090113
  Transmission Date: 20090719
  Serious: Yes (Life-Threatening, Hospitalization)
  Sender: FDA-Public Use
  Company Number: Z0000661A

PATIENT
  Age: 53 Year
  Sex: Female
  Weight: 84.7 kg

DRUGS (2)
  1. BLINDED TRIAL MEDICATION [Suspect]
     Route: 048
     Dates: start: 20080321
  2. LAPATINIB [Suspect]
     Dosage: 1500MG PER DAY
     Route: 048
     Dates: start: 20080321

REACTIONS (1)
  - DYSPNOEA [None]
